FAERS Safety Report 8306941-7 (Version None)
Quarter: 2012Q2

REPORT INFORMATION
  Report Type: 
  Country: None (occurrence: None)
  Receive Date: 20120424
  Receipt Date: 20120411
  Transmission Date: 20120825
  Serious: Yes (Other)
  Sender: FDA-Public Use
  Company Number: US-US-EMD SERONO, INC.-7067953

PATIENT
  Sex: Male
  Weight: 64 kg

DRUGS (2)
  1. SYNTHROID [Concomitant]
     Indication: HYPOTHYROIDISM
  2. REBIF [Suspect]
     Indication: MULTIPLE SCLEROSIS
     Route: 058
     Dates: start: 20070306

REACTIONS (3)
  - BIPOLAR DISORDER [None]
  - INJECTION SITE REACTION [None]
  - HEPATOTOXICITY [None]
